FAERS Safety Report 5045129-2 (Version None)
Quarter: 2006Q2

REPORT INFORMATION
  Report Type: 
  Country: None (occurrence: None)
  Receive Date: 20060601
  Receipt Date: 20060327
  Transmission Date: 20061013
  Serious: No
  Sender: FDA-Public Use
  Company Number: 2006-BP-03475BP

PATIENT
  Age: 77 Year
  Sex: Male

DRUGS (4)
  1. SPIRIVA [Suspect]
     Dosage: 18 MCG (18 MCG), IH
     Route: 055
     Dates: start: 20051001
  2. SPIRIVA [Suspect]
  3. COUMADIN [Concomitant]
  4. K+ (POTASSIUM) [Concomitant]

REACTIONS (1)
  - DRUG INEFFECTIVE [None]
